FAERS Safety Report 11164887 (Version 2)
Quarter: 2015Q3

REPORT INFORMATION
  Report Type: Spontaneous
  Country: BR (occurrence: BR)
  Receive Date: 20150604
  Receipt Date: 20150717
  Transmission Date: 20151125
  Serious: Yes (Other)
  Sender: FDA-Public Use
  Company Number: BR-SA-2015SA075184

PATIENT
  Age: 66 Year
  Sex: Male
  Weight: 106 kg

DRUGS (2)
  1. CLOPIDOGREL BISULFATE. [Suspect]
     Active Substance: CLOPIDOGREL BISULFATE
     Indication: PROPHYLAXIS
     Route: 048
     Dates: start: 2013, end: 201506
  2. OLMESARTAN [Concomitant]
     Active Substance: OLMESARTAN

REACTIONS (3)
  - Intestinal haemorrhage [Recovered/Resolved]
  - Umbilical hernia repair [Unknown]
  - Faeces discoloured [Recovered/Resolved]

NARRATIVE: CASE EVENT DATE: 201503
